FAERS Safety Report 6314029-X (Version None)
Quarter: 2009Q3

REPORT INFORMATION
  Report Type: 
  Country: None (occurrence: None)
  Receive Date: 20090818
  Receipt Date: 20090810
  Transmission Date: 20100115
  Serious: Yes (Hospitalization)
  Sender: FDA-Public Use
  Company Number: FR-ALLERGAN-0911239US

PATIENT
  Age: 72 Year
  Sex: Female

DRUGS (4)
  1. ALPHAGAN [Suspect]
     Indication: GLAUCOMA
     Dosage: UNK
     Route: 047
     Dates: end: 20090727
  2. INDORAMIN [Suspect]
     Indication: DRUG USE FOR UNKNOWN INDICATION
     Dosage: 25 MG, BID
     Route: 048
     Dates: start: 20090713, end: 20090727
  3. COSOPT [Suspect]
     Indication: GLAUCOMA
     Dosage: UNK
     Dates: end: 20090727
  4. XALATAN [Concomitant]
     Dosage: UNK
     Dates: end: 20090727

REACTIONS (1)
  - ATRIOVENTRICULAR BLOCK COMPLETE [None]
